FAERS Safety Report 17412234 (Version 1)
Quarter: 2020Q1

REPORT INFORMATION
  Report Type: Spontaneous
  Country: US (occurrence: US)
  Receive Date: 20200212
  Receipt Date: 20200212
  Transmission Date: 20200409
  Serious: Yes (Other)
  Sender: FDA-Public Use
  Company Number: None

PATIENT
  Age: 57 Year
  Sex: Male
  Weight: 83.25 kg

DRUGS (17)
  1. COSOPT [Concomitant]
     Active Substance: DORZOLAMIDE HYDROCHLORIDE\TIMOLOL MALEATE
  2. FLUTICASONE. [Concomitant]
     Active Substance: FLUTICASONE
  3. LISINOPRIL. [Concomitant]
     Active Substance: LISINOPRIL
  4. CIALIS [Concomitant]
     Active Substance: TADALAFIL
  5. FISH OIL [Concomitant]
     Active Substance: FISH OIL
  6. ECHINACEA HERB [Concomitant]
  7. HCTZ [Concomitant]
     Active Substance: HYDROCHLOROTHIAZIDE
  8. AMLODIPINE [Concomitant]
     Active Substance: AMLODIPINE BESYLATE
  9. ZINC. [Concomitant]
     Active Substance: ZINC
  10. AZELASTINE. [Concomitant]
     Active Substance: AZELASTINE HYDROCHLORIDE
  11. VITAMIN E [Concomitant]
     Active Substance: .ALPHA.-TOCOPHEROL
  12. TADALAFIL. [Concomitant]
     Active Substance: TADALAFIL
  13. ASPIRIN. [Concomitant]
     Active Substance: ASPIRIN
  14. MAGNESIUM [Concomitant]
     Active Substance: MAGNESIUM
  15. INLYTA [Suspect]
     Active Substance: AXITINIB
     Indication: RENAL CANCER
     Route: 048
     Dates: start: 20200210
  16. INLYTA [Suspect]
     Active Substance: AXITINIB
     Indication: RENAL CANCER
     Route: 048
     Dates: start: 20191111
  17. VITAMIN D3 [Concomitant]
     Active Substance: CHOLECALCIFEROL

REACTIONS (2)
  - Fatigue [None]
  - Decreased appetite [None]

NARRATIVE: CASE EVENT DATE: 20200212
